FAERS Safety Report 20137918 (Version 1)
Quarter: 2021Q4

REPORT INFORMATION
  Report Type: Spontaneous
  Country: US (occurrence: US)
  Receive Date: 20211202
  Receipt Date: 20211202
  Transmission Date: 20220303
  Serious: Yes (Other)
  Sender: FDA-Public Use
  Company Number: US-drreddys-LIT/USA/21/0144272

PATIENT
  Age: 12 Year
  Sex: Female

DRUGS (12)
  1. COLCHICINE [Suspect]
     Active Substance: COLCHICINE
     Indication: Steroid dependence
  2. METHOTREXATE [Suspect]
     Active Substance: METHOTREXATE
     Indication: Steroid dependence
  3. HYDROXYCHLOROQUINE [Suspect]
     Active Substance: HYDROXYCHLOROQUINE
     Indication: Steroid dependence
  4. DAPSONE [Suspect]
     Active Substance: DAPSONE
     Indication: Steroid dependence
  5. IMMUNE GLOBULIN NOS [Suspect]
     Active Substance: IMMUNE GLOBULIN NOS
     Indication: Steroid dependence
     Route: 042
  6. TOCILIZUMAB [Suspect]
     Active Substance: TOCILIZUMAB
     Indication: Steroid dependence
  7. ETANERCEPT [Suspect]
     Active Substance: ETANERCEPT
     Indication: Steroid dependence
  8. ADALIMUMAB [Suspect]
     Active Substance: ADALIMUMAB
     Indication: Steroid dependence
  9. INFLIXIMAB [Suspect]
     Active Substance: INFLIXIMAB
     Indication: Steroid dependence
  10. METHYLPREDNISOLONE [Concomitant]
     Active Substance: METHYLPREDNISOLONE
     Indication: CANDLE syndrome
     Dosage: EVERY 2-4 WEEKS
  11. PREDNISONE [Concomitant]
     Active Substance: PREDNISONE
     Indication: CANDLE syndrome
  12. PREDNISONE [Concomitant]
     Active Substance: PREDNISONE
     Dosage: TAPER OVER ONE YEAR

REACTIONS (1)
  - Drug ineffective [Unknown]
